FAERS Safety Report 8073592-1 (Version None)
Quarter: 2012Q1

REPORT INFORMATION
  Report Type: 
  Country: None (occurrence: None)
  Receive Date: 20120120
  Receipt Date: 20120110
  Transmission Date: 20120608
  Serious: Yes (Other)
  Sender: FDA-Public Use
  Company Number: GB-GDP-12412784

PATIENT
  Age: 96 Year
  Sex: Male
  Weight: 78 kg

DRUGS (22)
  1. DOXYCYCLINE [Suspect]
     Dates: start: 20111005, end: 20111012
  2. CEPHALEXIN [Concomitant]
  3. PHOLCODINE [Concomitant]
  4. FUROSEMIDE [Concomitant]
  5. ACETAMINOPHEN [Concomitant]
  6. ERYTHROMYCIN [Suspect]
     Indication: PRODUCT USED FOR UNKNOWN INDICATION
     Dates: start: 20111107, end: 20111114
  7. ERYTHROMYCIN [Suspect]
     Indication: PRODUCT USED FOR UNKNOWN INDICATION
     Dates: start: 20111229
  8. ERYTHROMYCIN [Suspect]
     Indication: PRODUCT USED FOR UNKNOWN INDICATION
     Dates: start: 20111003, end: 20111008
  9. DIORALYTE /00386201/ [Concomitant]
  10. ACETAMINOPHEN AND CODEINE PHOSPHATE [Concomitant]
  11. ASPIRIN [Concomitant]
  12. DOUBLEBASE [Concomitant]
  13. OLIVE OIL [Concomitant]
  14. NITROFURANTOIN [Concomitant]
  15. CIPROFLOXACIN [Concomitant]
  16. TRIMETHOPRIM [Concomitant]
  17. SUDOCREM [Concomitant]
  18. CAPASAL [Concomitant]
  19. ALGESAL /00002701/ [Concomitant]
  20. INFLUENZA VIRUS [Concomitant]
  21. LEVOTHYROXINE SODIUM [Concomitant]
  22. CLOTRIMAZOLE [Concomitant]

REACTIONS (1)
  - DEAFNESS [None]
